FAERS Safety Report 23279762 (Version 2)
Quarter: 2023Q4

REPORT INFORMATION
  Report Type: Report from Study
  Country: BR (occurrence: BR)
  Receive Date: 20231209
  Receipt Date: 20231213
  Transmission Date: 20240110
  Serious: Yes (Hospitalization, Other)
  Sender: FDA-Public Use
  Company Number: BR-CELLTRION INC.-2023BR023540

PATIENT

DRUGS (7)
  1. INFLIXIMAB [Suspect]
     Active Substance: INFLIXIMAB
     Indication: Ankylosing spondylitis
     Dosage: 5 AMPOULES EVERY 60 DAYS
     Route: 042
     Dates: start: 20220901
  2. INFLIXIMAB [Suspect]
     Active Substance: INFLIXIMAB
     Dosage: THE PATIENT INFORMED US THAT HE USED REMSIMA FOR THE FIRST TIME IN JANUARY 2023
     Dates: start: 202301
  3. INFLIXIMAB [Suspect]
     Active Substance: INFLIXIMAB
     Dosage: 5 AMPOULES EVERY 60 DAYS
     Route: 042
     Dates: start: 20231113
  4. INFLIXIMAB [Suspect]
     Active Substance: INFLIXIMAB
     Dosage: PATIENT STARTED TREATMENT WITH REMSIMA ON DEC/04/2023
     Dates: start: 20231204
  5. OMEPRAZOLE [Concomitant]
     Active Substance: OMEPRAZOLE
     Indication: Abdominal pain upper
     Dosage: UNK
     Route: 048
  6. VALPROIC ACID [Concomitant]
     Active Substance: VALPROIC ACID
     Indication: Seizure prophylaxis
     Dosage: 2 PILLS A DAY
     Route: 048
  7. ESCITALOPRAM [Concomitant]
     Active Substance: ESCITALOPRAM OXALATE
     Indication: Anxiety
     Dosage: 1 PILL A DAY
     Route: 048

REACTIONS (9)
  - Condition aggravated [Unknown]
  - Thrombosis [Not Recovered/Not Resolved]
  - Seizure [Not Recovered/Not Resolved]
  - Chest pain [Not Recovered/Not Resolved]
  - Seizure [Not Recovered/Not Resolved]
  - Fear [Unknown]
  - Headache [Unknown]
  - Pyrexia [Unknown]
  - Intentional product use issue [Unknown]

NARRATIVE: CASE EVENT DATE: 20230201
